FAERS Safety Report 17187723 (Version 2)
Quarter: 2020Q1

REPORT INFORMATION
  Report Type: Spontaneous
  Country: US (occurrence: US)
  Receive Date: 20191221
  Receipt Date: 20200102
  Transmission Date: 20200409
  Serious: No
  Sender: FDA-Public Use
  Company Number: US-009507513-1912USA009356

PATIENT
  Sex: Female

DRUGS (1)
  1. NEXPLANON [Suspect]
     Active Substance: ETONOGESTREL
     Indication: CONTRACEPTION
     Dosage: 1 DOSAGE FORM; 1 ROD EVERY THREE YEARS
     Route: 059
     Dates: start: 201905, end: 20191218

REACTIONS (1)
  - Implant site pain [Unknown]

NARRATIVE: CASE EVENT DATE: 201907
